FAERS Safety Report 5284250-0 (Version None)
Quarter: 2007Q2

REPORT INFORMATION
  Report Type: 
  Country: None (occurrence: None)
  Receive Date: 20070403
  Receipt Date: 20070322
  Transmission Date: 20071010
  Serious: Yes (Other)
  Sender: FDA-Public Use
  Company Number: CN-BAYER-200612373GDS

PATIENT
  Sex: Female

DRUGS (1)
  1. CLOTRIMAZOLE [Suspect]
     Indication: VULVOVAGINAL MYCOTIC INFECTION
     Route: 067
     Dates: start: 20060527, end: 20060527

REACTIONS (2)
  - PLACENTA PRAEVIA HAEMORRHAGE [None]
  - VAGINAL HAEMORRHAGE [None]
